FAERS Safety Report 12236045 (Version 1)
Quarter: 2016Q2

REPORT INFORMATION
  Report Type: Report from Study
  Country: BR (occurrence: BR)
  Receive Date: 20160404
  Receipt Date: 20160404
  Transmission Date: 20160815
  Serious: Yes (Hospitalization, Other)
  Sender: FDA-Public Use
  Company Number: PHHY2013BR150171

PATIENT
  Age: 57 Year
  Sex: Female
  Weight: 60 kg

DRUGS (5)
  1. GILENYA [Suspect]
     Active Substance: FINGOLIMOD HYDROCHLORIDE
     Indication: MULTIPLE SCLEROSIS
     Dosage: 0.5 MG, QD
     Dates: start: 201310
  2. BROMAZEPAM [Concomitant]
     Active Substance: BROMAZEPAM
     Indication: PRODUCT USED FOR UNKNOWN INDICATION
     Dosage: 1 DF, DAILY
     Route: 048
  3. ENTECAVIR. [Suspect]
     Active Substance: ENTECAVIR
     Indication: HEPATITIS B
     Dosage: 0.5 MG, QD
     Route: 048
  4. FAMPYRA [Suspect]
     Active Substance: DALFAMPRIDINE
     Indication: MULTIPLE SCLEROSIS
     Dosage: 10 MG, Q12H
  5. LEXAPRO [Concomitant]
     Active Substance: ESCITALOPRAM OXALATE
     Indication: DEPRESSION
     Route: 065

REACTIONS (16)
  - Cataract [Unknown]
  - Tremor [Recovering/Resolving]
  - Spinal cord disorder [Unknown]
  - Back pain [Not Recovered/Not Resolved]
  - Malaise [Recovering/Resolving]
  - Emotional disorder [Unknown]
  - Fear of falling [Unknown]
  - Sneezing [Unknown]
  - Vision blurred [Recovering/Resolving]
  - Viral infection [Recovering/Resolving]
  - Depressed mood [Recovering/Resolving]
  - Pigmentation disorder [Recovering/Resolving]
  - Skin wound [Recovering/Resolving]
  - Diarrhoea [Recovering/Resolving]
  - Weight decreased [Recovered/Resolved]
  - Head discomfort [Recovering/Resolving]

NARRATIVE: CASE EVENT DATE: 20131204
